FAERS Safety Report 6914139-X (Version None)
Quarter: 2010Q3

REPORT INFORMATION
  Report Type: 
  Country: None (occurrence: None)
  Receive Date: 20100809
  Receipt Date: 20100728
  Transmission Date: 20110219
  Serious: Yes (Other)
  Sender: FDA-Public Use
  Company Number: BR-PFIZER INC-2010095151

PATIENT
  Age: 72 Year
  Sex: Male
  Weight: 81.179 kg

DRUGS (4)
  1. VIAGRA [Suspect]
     Indication: ERECTILE DYSFUNCTION
     Dosage: UNK
     Route: 048
     Dates: start: 20080101
  2. VIAGRA [Suspect]
     Dosage: 75 MG, AS NEEDED
     Route: 048
  3. SYNTHROID [Concomitant]
     Dosage: UNK
     Dates: start: 20080101
  4. SIMVASTATIN [Concomitant]
     Dosage: UNK
     Dates: start: 20080101

REACTIONS (2)
  - EJACULATION DELAYED [None]
  - THYROID OPERATION [None]
